FAERS Safety Report 9786231 (Version 1)
Quarter: 2013Q4

REPORT INFORMATION
  Report Type: Report from Study
  Country: US (occurrence: US)
  Receive Date: 20131227
  Receipt Date: 20131227
  Transmission Date: 20140711
  Serious: Yes (Death, Hospitalization, Other)
  Sender: FDA-Public Use
  Company Number: US-US-EMD SERONO, INC.-7259400

PATIENT
  Age: 66 Year
  Sex: Male

DRUGS (2)
  1. REBIF [Suspect]
     Indication: MULTIPLE SCLEROSIS
     Dates: end: 201309
  2. CYTOXAN [Concomitant]
     Indication: MULTIPLE SCLEROSIS

REACTIONS (12)
  - Pneumonia [Fatal]
  - Chronic obstructive pulmonary disease [Fatal]
  - Renal failure chronic [Fatal]
  - Emphysema [Fatal]
  - Candida infection [Unknown]
  - Multiple sclerosis [Unknown]
  - Lung disorder [Unknown]
  - Cardiac disorder [Unknown]
  - Central nervous system lesion [Unknown]
  - Fall [Unknown]
  - Rib fracture [Unknown]
  - Head injury [Unknown]
